FAERS Safety Report 9400863 (Version 1)
Quarter: 2013Q3

REPORT INFORMATION
  Report Type: Spontaneous
  Country: US (occurrence: US)
  Receive Date: 20130715
  Receipt Date: 20130715
  Transmission Date: 20140515
  Serious: Yes (Other)
  Sender: FDA-Public Use
  Company Number: US-RB-048014-12

PATIENT
  Age: 25 Year
  Sex: Female

DRUGS (5)
  1. GENERIC BUPRENORPHINE TABLET [Suspect]
     Indication: DRUG DEPENDENCE
     Dosage: STARTED ON 16 MG DAILY AND HAS BEEN MEDICALLY TAPERED DOWN TO 4 MG DAILY
     Route: 060
     Dates: start: 201204, end: 20130101
  2. GENERIC BUPRENORPHINE TABLET [Suspect]
     Route: 065
     Dates: start: 20130101, end: 201306
  3. GENERIC BUPRENORPHINE TABLET [Suspect]
     Route: 065
     Dates: start: 201306
  4. PRENATAL VITAMINS [Concomitant]
     Indication: PREGNANCY
     Dosage: DOSING DETAILS UNKNOWN
     Route: 065
     Dates: start: 2012
  5. NICOTINE [Concomitant]
     Indication: NICOTINE DEPENDENCE
     Dosage: ONE THIRD TO ONE HALF PACK OF CIGARETTES DAILY
     Route: 065

REACTIONS (5)
  - Foetal growth restriction [Recovered/Resolved]
  - Foetal heart rate decreased [Recovered/Resolved]
  - Exposure during pregnancy [Recovered/Resolved]
  - Wrong technique in drug usage process [Not Recovered/Not Resolved]
  - Induced labour [None]
